FAERS Safety Report 6317062-7 (Version None)
Quarter: 2009Q3

REPORT INFORMATION
  Report Type: 
  Country: None (occurrence: None)
  Receive Date: 20090820
  Receipt Date: 20090812
  Transmission Date: 20100115
  Serious: Yes (Other)
  Sender: FDA-Public Use
  Company Number: ES-PFIZER INC-2009253632

PATIENT
  Age: 70 Year

DRUGS (6)
  1. NORVASC [Suspect]
     Indication: HYPERTENSION
     Dosage: 5 MG, UNK
     Dates: start: 20000101, end: 20090311
  2. NORVASC [Suspect]
     Dosage: 10 MG, DAILY
     Dates: start: 20090311, end: 20090616
  3. PARACETAMOL [Concomitant]
     Dosage: 1 G, DAILY
     Route: 048
  4. ALLOPURINOL [Concomitant]
     Dosage: 100 MG, DAILY
     Route: 048
     Dates: start: 20070301
  5. ENALAPRIL MALEATE AND HYDROCHLOROTHIAZIDE [Concomitant]
     Dosage: 20 MG/12.5 DAILY
     Route: 048
     Dates: start: 20080301
  6. SINTROM [Concomitant]
     Dosage: UNK
     Route: 048
     Dates: start: 20051101

REACTIONS (4)
  - GINGIVAL BLEEDING [None]
  - GINGIVAL HYPERPLASIA [None]
  - GINGIVAL PAIN [None]
  - TOOTH LOSS [None]
